FAERS Safety Report 5514446-1 (Version None)
Quarter: 2007Q4

REPORT INFORMATION
  Report Type: 
  Country: None (occurrence: None)
  Receive Date: 20071113
  Receipt Date: 20070522
  Transmission Date: 20080405
  Serious: No
  Sender: FDA-Public Use
  Company Number: A0652408A

PATIENT
  Sex: Male

DRUGS (7)
  1. COREG [Suspect]
     Indication: DRUG USE FOR UNKNOWN INDICATION
     Dosage: 25MG TWICE PER DAY
     Route: 048
     Dates: start: 20040101, end: 20070301
  2. AVANDIA [Concomitant]
     Route: 048
  3. METFORMIN HCL [Concomitant]
  4. DIOVAN [Concomitant]
  5. PROTONIX [Concomitant]
  6. COUMADIN [Concomitant]
  7. LASIX [Concomitant]

REACTIONS (2)
  - DYSPNOEA [None]
  - HEART RATE DECREASED [None]
